FAERS Safety Report 6904986-2 (Version None)
Quarter: 2010Q3

REPORT INFORMATION
  Report Type: 
  Country: None (occurrence: None)
  Receive Date: 20100804
  Receipt Date: 20090819
  Transmission Date: 20110219
  Serious: No
  Sender: FDA-Public Use
  Company Number: US-PFIZER INC-2009227800

PATIENT
  Sex: Female
  Weight: 134.2 kg

DRUGS (7)
  1. LYRICA [Suspect]
     Indication: MUSCLE SPASMS
     Dosage: UNK
  2. LYRICA [Suspect]
     Indication: BURNING SENSATION
  3. VITAMIN B-12 [Concomitant]
     Dosage: UNK
     Route: 048
  4. ACETYLSALICYLIC ACID [Concomitant]
     Dosage: UNK
     Route: 048
  5. METFORMIN [Concomitant]
     Dosage: UNK
     Route: 048
  6. WELLBUTRIN [Concomitant]
     Dosage: UNK
     Route: 048
  7. ATENOLOL [Concomitant]
     Dosage: UNK
     Route: 048

REACTIONS (3)
  - DYSSTASIA [None]
  - FALL [None]
  - PAIN [None]
